FAERS Safety Report 8810385 (Version 1)
Quarter: 2012Q4

REPORT INFORMATION
  Report Type: 
  Country: GB (occurrence: FR)
  Receive Date: 20120926
  Receipt Date: 20120926
  Transmission Date: 20130627
  Serious: Yes (Other)
  Sender: FDA-Public Use
  Company Number: GB-009507513-1209FRA009250

PATIENT
  Age: 32 Year
  Sex: Female

DRUGS (3)
  1. ISENTRESS [Suspect]
     Indication: HIV INFECTION
     Dosage: 400 mg, bid
     Route: 048
     Dates: start: 20110310
  2. TRUVADA [Concomitant]
     Indication: HIV INFECTION
     Dosage: UNK
     Route: 048
     Dates: start: 20110310
  3. STUDY DRUG (UNSPECIFIED) [Suspect]
     Indication: HIV INFECTION
     Dosage: UNK
     Route: 048
     Dates: start: 20110310

REACTIONS (2)
  - Maternal exposure during pregnancy [Recovered/Resolved]
  - Abortion [Unknown]
